FAERS Safety Report 16211748 (Version 1)
Quarter: 2019Q2

REPORT INFORMATION
  Report Type: Spontaneous
  Country: US (occurrence: US)
  Receive Date: 20190314
  Receipt Date: 20190314
  Transmission Date: 20190711
  Serious: No
  Sender: FDA-Public Use
  Company Number: None

PATIENT
  Age: 57 Year
  Sex: Male

DRUGS (4)
  1. SPIRONOLACTONE. [Concomitant]
     Active Substance: SPIRONOLACTONE
  2. OPDIVO [Suspect]
     Active Substance: NIVOLUMAB
  3. ROSUVASTATIN. [Concomitant]
     Active Substance: ROSUVASTATIN
  4. TELMISARTAN. [Concomitant]
     Active Substance: TELMISARTAN

REACTIONS (3)
  - Pneumonitis [None]
  - Immune system disorder [None]
  - Therapy cessation [None]

NARRATIVE: CASE EVENT DATE: 20190307
